FAERS Safety Report 25265113 (Version 1)
Quarter: 2025Q2

REPORT INFORMATION
  Report Type: Spontaneous
  Country: JP (occurrence: JP)
  Receive Date: 20250502
  Receipt Date: 20250502
  Transmission Date: 20250716
  Serious: Yes (Disabling, Other)
  Sender: MERCK SHARP & DOHME LLC
  Company Number: JP-009507513-2281874

PATIENT
  Age: 53 Year
  Sex: Male

DRUGS (1)
  1. BRIDION [Suspect]
     Active Substance: SUGAMMADEX SODIUM
     Route: 042
     Dates: start: 202404, end: 202404

REACTIONS (3)
  - Anaphylactic shock [Unknown]
  - Mental impairment [Unknown]
  - Hypoxic-ischaemic encephalopathy [Unknown]
